FAERS Safety Report 7990756-3 (Version None)
Quarter: 2011Q4

REPORT INFORMATION
  Report Type: 
  Country: None (occurrence: None)
  Receive Date: 20111219
  Receipt Date: 20111219
  Transmission Date: 20120403
  Serious: Yes (Other)
  Sender: FDA-Public Use
  Company Number: None

PATIENT
  Age: 51 Year
  Sex: Female
  Weight: 63.502 kg

DRUGS (1)
  1. EFFEXOR [Suspect]
     Indication: AFFECTIVE DISORDER
     Dates: start: 20070105, end: 20111117

REACTIONS (4)
  - VERTIGO [None]
  - HYPERHIDROSIS [None]
  - VISUAL IMPAIRMENT [None]
  - MOOD ALTERED [None]
